FAERS Safety Report 20020731 (Version 1)
Quarter: 2021Q4

REPORT INFORMATION
  Report Type: Spontaneous
  Country: None (occurrence: GB)
  Receive Date: 20211101
  Receipt Date: 20211101
  Transmission Date: 20220303
  Serious: Yes (Hospitalization, Other)
  Sender: FDA-Public Use
  Company Number: GB-Acella Pharmaceuticals, LLC-2121292

PATIENT
  Age: 62 Year
  Sex: Female

DRUGS (1)
  1. BROMPHENIRAMINE MAL, PSEUDOEPHEDRINE HCL, AND DEXTROMETHORPHAN HBR [Suspect]
     Active Substance: BROMPHENIRAMINE MALEATE\DEXTROMETHORPHAN HYDROBROMIDE\PSEUDOEPHEDRINE HYDROCHLORIDE
     Indication: Product used for unknown indication
     Route: 065

REACTIONS (8)
  - Hypertension [Unknown]
  - Posterior reversible encephalopathy syndrome [Unknown]
  - Respiratory symptom [Unknown]
  - Aphasia [Unknown]
  - Epilepsy [Unknown]
  - Headache [Unknown]
  - Confusional state [Unknown]
  - Humerus fracture [Unknown]
